FAERS Safety Report 22044888 (Version 1)
Quarter: 2023Q1

REPORT INFORMATION
  Report Type: Spontaneous
  Country: US (occurrence: None)
  Receive Date: 20230227
  Receipt Date: 20230227
  Transmission Date: 20230418
  Serious: No
  Sender: FDA-Public Use
  Company Number: None

PATIENT
  Age: 55 Year
  Sex: Female
  Weight: 65.7 kg

DRUGS (12)
  1. FLUOROMETHOLONE [Suspect]
     Active Substance: FLUOROMETHOLONE
     Dosage: OTHER QUANTITY : 1 DROP(S);?FREQUENCY : 3 TIMES A DAY;?
     Route: 047
     Dates: start: 20230224, end: 20230225
  2. GABAPENTIN [Concomitant]
     Active Substance: GABAPENTIN
  3. LISINOPRIL [Concomitant]
  4. HYDROXIZINE [Concomitant]
  5. PLAQUINIL [Concomitant]
  6. TOPIRAMATE [Concomitant]
     Active Substance: TOPIRAMATE
  7. LEVOTHYROXINE [Concomitant]
  8. NURTEC ODT [Concomitant]
     Active Substance: RIMEGEPANT SULFATE
  9. PSYLLIUM HUSK [Concomitant]
  10. PROBIOTICS NOS [Concomitant]
     Active Substance: PROBIOTICS NOS
  11. PREVENTA MIGRAINE [Concomitant]
  12. GLUCOSAMINE CHONDROITIN [Concomitant]

REACTIONS (6)
  - Ocular hyperaemia [None]
  - Eye irritation [None]
  - Eye pruritus [None]
  - Lacrimation increased [None]
  - Therapy cessation [None]
  - Instillation site reaction [None]

NARRATIVE: CASE EVENT DATE: 20230225
